FAERS Safety Report 21244220 (Version 1)
Quarter: 2022Q3

REPORT INFORMATION
  Report Type: Report from Study
  Country: GB (occurrence: GB)
  Receive Date: 20220823
  Receipt Date: 20220823
  Transmission Date: 20221026
  Serious: Yes (Death, Other)
  Sender: FDA-Public Use
  Company Number: GB-CELGENE-GBR-20190403087

PATIENT
  Sex: Female

DRUGS (6)
  1. POMALIDOMIDE [Suspect]
     Active Substance: POMALIDOMIDE
     Indication: Plasma cell myeloma
     Dosage: FREQUENCY TEXT: CYCLE 1?20 MILLIGRAM
     Route: 048
     Dates: start: 20170322
  2. POMALIDOMIDE [Suspect]
     Active Substance: POMALIDOMIDE
     Dosage: FREQUENCY TEXT: CYCLE 1?20 MILLIGRAM
     Route: 048
     Dates: start: 20170329
  3. POMALIDOMIDE [Suspect]
     Active Substance: POMALIDOMIDE
     Dosage: FREQUENCY TEXT: CYCLE 1?20 MILLIGRAM
     Route: 048
     Dates: start: 20170405
  4. POMALIDOMIDE [Suspect]
     Active Substance: POMALIDOMIDE
     Dosage: FREQUENCY TEXT: CYCLE 1?20 MILLIGRAM
     Route: 048
     Dates: start: 20170412
  5. POMALIDOMIDE [Suspect]
     Active Substance: POMALIDOMIDE
     Dosage: FREQUENCY TEXT: CYCLE 1?4 MILLIGRAM
     Route: 048
     Dates: start: 20170322, end: 20170411
  6. POMALIDOMIDE [Suspect]
     Active Substance: POMALIDOMIDE
     Dosage: FREQUENCY TEXT: CYCLE 16?2 MILLIGRAM
     Route: 048
     Dates: start: 20180522, end: 20180612

REACTIONS (2)
  - Muscular weakness [Recovered/Resolved]
  - Death [Fatal]

NARRATIVE: CASE EVENT DATE: 20180522
